FAERS Safety Report 4883035-4 (Version None)
Quarter: 2006Q1

REPORT INFORMATION
  Report Type: 
  Country: None (occurrence: None)
  Receive Date: 20060113
  Receipt Date: 20060102
  Transmission Date: 20060701
  Serious: Yes (Other)
  Sender: FDA-Public Use
  Company Number: FR200601000097

PATIENT
  Age: 68 Year
  Sex: Female

DRUGS (6)
  1. FORTEO [Suspect]
     Indication: OSTEOPOROSIS
     Dosage: 20 UG, DAILY (1/D), SUBCUTANEOUS
     Route: 058
     Dates: start: 20050605, end: 20051003
  2. FORTEO PEN (FORTEO PEN) PEN, DISPOSABLE [Concomitant]
  3. SERETIDE (FLUTICASONE PROPIONATE, SALMETEROL) [Concomitant]
  4. MEDROL [Concomitant]
  5. TOPALGIC (TRAMADOL HYDROCHLORIDE) [Concomitant]
  6. DAFALGAN /FRA/(PARACETAMOL) [Concomitant]

REACTIONS (2)
  - HYPERTENSION [None]
  - OLIGURIA [None]
